FAERS Safety Report 6491169-6 (Version None)
Quarter: 2009Q4

REPORT INFORMATION
  Report Type: 
  Country: None (occurrence: None)
  Receive Date: 20091211
  Receipt Date: 20091202
  Transmission Date: 20100525
  Serious: Yes (Other)
  Sender: FDA-Public Use
  Company Number: US-ASTRAZENECA-2009SE30025

PATIENT
  Age: 50 Year
  Sex: Female
  Weight: 117.9 kg

DRUGS (3)
  1. PRILOSEC [Suspect]
     Indication: REFLUX OESOPHAGITIS
     Dosage: FOR 20 PLUS YEARS
     Route: 048
  2. NEXIUM [Suspect]
     Indication: REFLUX OESOPHAGITIS
     Route: 048
  3. PRILOSEC OTC [Suspect]
     Indication: REFLUX OESOPHAGITIS
     Route: 048

REACTIONS (10)
  - AUTOIMMUNE DISORDER [None]
  - CHRONIC HEPATITIS [None]
  - DIABETES MELLITUS [None]
  - DRUG HYPERSENSITIVITY [None]
  - DRUG INEFFECTIVE [None]
  - HEPATIC NEOPLASM [None]
  - HEPATOMEGALY [None]
  - PITUITARY TUMOUR [None]
  - POST PROCEDURAL DIARRHOEA [None]
  - REFLUX GASTRITIS [None]
